FAERS Safety Report 24970270 (Version 1)
Quarter: 2025Q1

REPORT INFORMATION
  Report Type: Spontaneous
  Country: US (occurrence: US)
  Receive Date: 20250214
  Receipt Date: 20250214
  Transmission Date: 20250409
  Serious: Yes (Other)
  Sender: ORGANON
  Company Number: US-MMM-FSZH9XPL

PATIENT
  Sex: Male

DRUGS (3)
  1. COZAAR [Suspect]
     Active Substance: LOSARTAN POTASSIUM
     Route: 048
  2. VYNDAMAX [Suspect]
     Active Substance: TAFAMIDIS
     Dosage: TAKE 1 CAPSULE (61MG) BY MOUTH DAILY
     Route: 048
  3. AZELASTINE [Suspect]
     Active Substance: AZELASTINE

REACTIONS (2)
  - Hypotension [Not Recovered/Not Resolved]
  - Epistaxis [Unknown]
